FAERS Safety Report 25773078 (Version 1)
Quarter: 2025Q3

REPORT INFORMATION
  Report Type: Spontaneous
  Country: US (occurrence: None)
  Receive Date: 20250905
  Receipt Date: 20250905
  Transmission Date: 20251020
  Serious: Yes (Hospitalization)
  Sender: FDA-CTU
  Company Number: None

PATIENT
  Age: 67 Year
  Sex: Male

DRUGS (5)
  1. ENBREL [Suspect]
     Active Substance: ETANERCEPT
     Indication: Rheumatoid arthritis
     Dosage: 50 MG/ML WEEKLY
     Dates: start: 20240315
  2. LISINOPRIL [Concomitant]
     Active Substance: LISINOPRIL
  3. LITHIUM [Concomitant]
     Active Substance: LITHIUM
  4. PROTONIX [Concomitant]
     Active Substance: PANTOPRAZOLE SODIUM
  5. TYLENOL [Concomitant]
     Active Substance: ACETAMINOPHEN

REACTIONS (2)
  - Pharyngeal haemorrhage [None]
  - Oesophageal haemorrhage [None]

NARRATIVE: CASE EVENT DATE: 20250825
